FAERS Safety Report 8144475-3 (Version None)
Quarter: 2012Q1

REPORT INFORMATION
  Report Type: 
  Country: None (occurrence: None)
  Receive Date: 20120217
  Receipt Date: 20120207
  Transmission Date: 20120608
  Serious: Yes (Hospitalization)
  Sender: FDA-Public Use
  Company Number: ES-ROCHE-1037888

PATIENT
  Sex: Male
  Weight: 86 kg

DRUGS (3)
  1. HERCEPTIN [Suspect]
     Indication: GASTRIC CANCER
     Dosage: LAST DOSE PRIOR TO SAE: 19 JAN 2012
     Route: 042
     Dates: start: 20120119
  2. OXALIPLATIN [Suspect]
     Indication: GASTRIC CANCER
     Dosage: LAST DOSE PRIOR TO SAE: 19 JAN 2012
     Route: 042
     Dates: start: 20120119
  3. XELODA [Suspect]
     Indication: GASTRIC CANCER
     Dosage: LAST DOSE PRIOR TO SAE: 02 FEB 2012
     Route: 048
     Dates: start: 20120119

REACTIONS (1)
  - MUCOSAL INFLAMMATION [None]
